FAERS Safety Report 17014446 (Version 1)
Quarter: 2019Q4

REPORT INFORMATION
  Report Type: Other
  Country: FR (occurrence: FR)
  Receive Date: 20191111
  Receipt Date: 20191111
  Transmission Date: 20200122
  Serious: Yes (Death, Other)
  Sender: FDA-Public Use
  Company Number: FR-APOTEX-2019AP024630

PATIENT
  Age: 26 Year
  Sex: Female

DRUGS (8)
  1. OXAZEPAM. [Concomitant]
     Active Substance: OXAZEPAM
     Indication: DEPRESSION
     Dosage: UNK
     Route: 048
  2. SEROPLEX [Suspect]
     Active Substance: ESCITALOPRAM OXALATE
     Indication: POISONING DELIBERATE
     Dosage: UNK (1 BOTTLE OF 20 ML! AT 20 MG / ML)
     Route: 048
     Dates: start: 20191012, end: 20191012
  3. ENOXAPARIN SODIUM. [Concomitant]
     Active Substance: ENOXAPARIN SODIUM
     Indication: PRODUCT USED FOR UNKNOWN INDICATION
     Dosage: UNK
     Route: 065
  4. DOLIPRANE [Suspect]
     Active Substance: ACETAMINOPHEN
     Indication: POISONING DELIBERATE
     Dosage: 15 G, UNK (30 CAPSULES AT 500 MG)
     Route: 048
     Dates: start: 20191012, end: 20191012
  5. ESOMEPRAZOLE. [Concomitant]
     Active Substance: ESOMEPRAZOLE MAGNESIUM
     Indication: PRODUCT USED FOR UNKNOWN INDICATION
     Dosage: UNK
     Route: 065
  6. LOXAPAC                            /00401801/ [Suspect]
     Active Substance: LOXAPINE
     Indication: POISONING DELIBERATE
     Dosage: 1500 MG, UNK (1 BOTTLE OF 60 ML TO 25 MG / ML)
     Route: 048
     Dates: start: 20191012, end: 20191012
  7. VENLAFAXINE [Concomitant]
     Active Substance: VENLAFAXINE HYDROCHLORIDE
     Indication: DEPRESSION
     Dosage: 75 MG, UNK
     Route: 048
  8. PAROXETINE HYDROCHLORIDE. [Suspect]
     Active Substance: PAROXETINE HYDROCHLORIDE
     Indication: POISONING DELIBERATE
     Dosage: 420 MG, UNK (21 MG OF 20 MG)
     Route: 048
     Dates: start: 20191012, end: 20191012

REACTIONS (1)
  - Poisoning deliberate [Fatal]

NARRATIVE: CASE EVENT DATE: 20191012
